FAERS Safety Report 8063795-4 (Version None)
Quarter: 2012Q1

REPORT INFORMATION
  Report Type: 
  Country: None (occurrence: None)
  Receive Date: 20120123
  Receipt Date: 20120111
  Transmission Date: 20120608
  Serious: Yes (Hospitalization, Disabling)
  Sender: FDA-Public Use
  Company Number: JP-MERCK-1111USA01094

PATIENT
  Age: 71 Year
  Sex: Female
  Weight: 55 kg

DRUGS (11)
  1. KALIMATE [Concomitant]
     Indication: RENAL FAILURE CHRONIC
     Route: 065
     Dates: start: 20100510, end: 20111006
  2. FERROUS CITRATE [Concomitant]
     Indication: IRON DEFICIENCY ANAEMIA
     Route: 065
     Dates: start: 20110729, end: 20111006
  3. PURSENNID (SENNOSIDES) [Concomitant]
     Indication: CONSTIPATION
     Route: 065
     Dates: start: 20110829, end: 20111006
  4. PEPCID RPD [Suspect]
     Indication: DECREASED APPETITE
     Route: 048
     Dates: start: 20110926, end: 20111006
  5. ADALAT [Concomitant]
     Indication: HYPERTENSION
     Route: 065
     Dates: start: 20110817, end: 20111012
  6. AMLODIPINE BESYLATE [Concomitant]
     Indication: HYPERTENSION
     Route: 065
     Dates: start: 20110907, end: 20111012
  7. DIOVAN [Concomitant]
     Indication: HYPERTENSION
     Route: 065
     Dates: start: 20110817, end: 20111013
  8. LASIX [Concomitant]
     Indication: RENAL FAILURE CHRONIC
     Route: 065
     Dates: start: 20100308
  9. PRAVASTATIN SODIUM [Concomitant]
     Indication: HYPERLIPIDAEMIA
     Route: 065
     Dates: start: 20090427, end: 20111013
  10. ALLOPURINOL [Concomitant]
     Indication: HYPERURICAEMIA
     Route: 065
     Dates: start: 20090622, end: 20111006
  11. EPADEL [Concomitant]
     Indication: HYPERLIPIDAEMIA
     Route: 065
     Dates: start: 20090427, end: 20111013

REACTIONS (2)
  - HEPATIC FAILURE [None]
  - RENAL FAILURE CHRONIC [None]
